FAERS Safety Report 7054011-0 (Version None)
Quarter: 2010Q4

REPORT INFORMATION
  Report Type: 
  Country: None (occurrence: None)
  Receive Date: 20101020
  Receipt Date: 20101006
  Transmission Date: 20110411
  Serious: Yes (Other)
  Sender: FDA-Public Use
  Company Number: US-PFIZER INC-2010127144

PATIENT
  Sex: Male
  Weight: 122.45 kg

DRUGS (9)
  1. LYRICA [Suspect]
     Indication: PAIN MANAGEMENT
     Dosage: 150 MG, 1X/DAY
     Route: 048
     Dates: start: 20081001
  2. LYRICA [Suspect]
     Dosage: 400MG
  3. LYRICA [Suspect]
     Dosage: 300MG
     Dates: start: 20100924
  4. LYRICA [Suspect]
     Dosage: 200MG
     Dates: start: 20101002
  5. SIMVASTATIN [Concomitant]
     Indication: BLOOD CHOLESTEROL ABNORMAL
     Dosage: 40 MG, 1X/DAY
  6. SIMVASTATIN [Concomitant]
     Indication: BLOOD PRESSURE ABNORMAL
  7. CITALOPRAM [Concomitant]
     Indication: DEPRESSION
     Dosage: 40 MG, 1X/DAY
  8. AMLODIPINE [Concomitant]
     Dosage: 5 MG, 1X/DAY
  9. ACETYLSALICYLIC ACID [Concomitant]
     Dosage: 81 MG, UNK

REACTIONS (2)
  - ABNORMAL DREAMS [None]
  - SLEEP DISORDER [None]
